FAERS Safety Report 7689074-2 (Version None)
Quarter: 2011Q3

REPORT INFORMATION
  Report Type: 
  Country: None (occurrence: None)
  Receive Date: 20110817
  Receipt Date: 20110810
  Transmission Date: 20111222
  Serious: Yes (Other)
  Sender: FDA-Public Use
  Company Number: US-MERCK-1107USA02296

PATIENT
  Age: 64 Year
  Sex: Female

DRUGS (7)
  1. ASPIRIN [Concomitant]
     Route: 065
  2. SINEMET [Suspect]
     Indication: PARKINSON'S DISEASE
     Route: 048
     Dates: start: 20110701
  3. MIRAPEX [Concomitant]
     Route: 065
  4. SINEMET [Suspect]
     Route: 048
     Dates: start: 20010701
  5. CARBIDOPA + LEVODOPA [Suspect]
     Route: 065
  6. AMBIEN [Concomitant]
     Route: 065
  7. NEURONTIN [Concomitant]
     Route: 065

REACTIONS (5)
  - GAIT DISTURBANCE [None]
  - MOVEMENT DISORDER [None]
  - TREMOR [None]
  - BACK DISORDER [None]
  - ADVERSE EVENT [None]
